FAERS Safety Report 14312814 (Version 2)
Quarter: 2018Q1

REPORT INFORMATION
  Report Type: Report from Study
  Country: BR (occurrence: BR)
  Receive Date: 20171221
  Receipt Date: 20180109
  Transmission Date: 20180509
  Serious: Yes (Other)
  Sender: FDA-Public Use
  Company Number: PHHY2016BR123971

PATIENT
  Age: 45 Year
  Sex: Female
  Weight: 70 kg

DRUGS (9)
  1. CABERGOLINE. [Suspect]
     Active Substance: CABERGOLINE
     Dosage: 2 DF, QW3
     Route: 048
  2. SANDOSTATIN LAR DEPOT [Suspect]
     Active Substance: OCTREOTIDE ACETATE
     Indication: ACROMEGALY
     Dosage: 30 MG, QMO (EVERY 28 DAYS)
     Route: 030
     Dates: start: 1999
  3. PREDNISONE. [Suspect]
     Active Substance: PREDNISONE
     Indication: ACROMEGALY
     Dosage: 1.5 DF, QD
     Route: 048
     Dates: start: 1998
  4. SANDOSTATIN LAR DEPOT [Suspect]
     Active Substance: OCTREOTIDE ACETATE
     Dosage: 2 DF, QMO (2 AMPOULES)
     Route: 030
     Dates: start: 201712
  5. SANDOSTATIN LAR DEPOT [Suspect]
     Active Substance: OCTREOTIDE ACETATE
     Dosage: 40 MG, QMO (2 AMPOULES EVERY 28 DAYS)
     Route: 030
     Dates: start: 20171006
  6. DIPIRONE [Concomitant]
     Active Substance: METAMIZOLE SODIUM
     Indication: PRODUCT USED FOR UNKNOWN INDICATION
     Route: 065
  7. PRIMERA [Concomitant]
     Active Substance: UNSPECIFIED INGREDIENT
     Indication: HORMONE REPLACEMENT THERAPY
     Dosage: 1 DF, QD (14 - 21)
     Route: 048
  8. PREMARIN [Concomitant]
     Active Substance: ESTROGENS, CONJUGATED
     Indication: HORMONE REPLACEMENT THERAPY
     Dosage: 1 DF, QD (1- 14)
     Route: 048
  9. CABERGOLINE. [Suspect]
     Active Substance: CABERGOLINE
     Indication: ACROMEGALY
     Dosage: 2 DF, QW
     Route: 048

REACTIONS (12)
  - Blood prolactin increased [Not Recovered/Not Resolved]
  - Osteoporosis [Unknown]
  - Dizziness [Recovered/Resolved]
  - Cholelithiasis [Recovered/Resolved]
  - Blood prolactin abnormal [Unknown]
  - Concomitant disease aggravated [Unknown]
  - Diabetes mellitus [Recovering/Resolving]
  - Hypothyroidism [Unknown]
  - Insulin-like growth factor increased [Unknown]
  - Blood cholesterol increased [Unknown]
  - Nephrolithiasis [Unknown]
  - Body height decreased [Unknown]

NARRATIVE: CASE EVENT DATE: 20160831
